FAERS Safety Report 23092138 (Version 3)
Quarter: 2024Q3

REPORT INFORMATION
  Report Type: Spontaneous
  Country: US (occurrence: US)
  Receive Date: 20231021
  Receipt Date: 20240809
  Transmission Date: 20241017
  Serious: No
  Sender: SANOFI AVENTIS
  Company Number: US-SA-SAC20231016000988

PATIENT
  Age: 14 Year
  Sex: Male
  Weight: 7.7 kg

DRUGS (2)
  1. DUPIXENT [Suspect]
     Active Substance: DUPILUMAB
     Indication: Nasal polyps
     Dosage: 200 MG, QOW
     Route: 058
     Dates: start: 2022
  2. DUPIXENT [Suspect]
     Active Substance: DUPILUMAB
     Indication: Eczema
     Dosage: UNK
     Dates: start: 202403

REACTIONS (7)
  - Cough [Not Recovered/Not Resolved]
  - Skin fissures [Unknown]
  - Dry skin [Unknown]
  - Exfoliative rash [Unknown]
  - Pruritus [Unknown]
  - Incorrect dose administered [Unknown]
  - Product prescribing error [Unknown]

NARRATIVE: CASE EVENT DATE: 20220101
